FAERS Safety Report 13113460 (Version 2)
Quarter: 2017Q1

REPORT INFORMATION
  Report Type: Spontaneous
  Country: HU (occurrence: HU)
  Receive Date: 20170113
  Receipt Date: 20170206
  Transmission Date: 20170428
  Serious: Yes (Death, Hospitalization)
  Sender: FDA-Public Use
  Company Number: HU-PFIZER INC-2016595883

PATIENT
  Age: 62 Year
  Sex: Female

DRUGS (10)
  1. ANORO ELLIPTA [Concomitant]
     Active Substance: UMECLIDINIUM BROMIDE\VILANTEROL TRIFENATATE
     Dosage: 1 DF, 1X/DAY (INSUFFLATION)
  2. O2 [Concomitant]
     Dosage: DAILY 16 HOURS, WITH FLOW 1.5 L/MIN
  3. KALDYUM [Concomitant]
     Active Substance: POTASSIUM CHLORIDE
     Dosage: 600 MG, UNK
  4. FUROSEMID [Concomitant]
     Active Substance: FUROSEMIDE
     Dosage: 40 MG, UNK
  5. CHINOPAMIL [Concomitant]
     Dosage: 120 MG, 2X
  6. XALKORI [Suspect]
     Active Substance: CRIZOTINIB
     Dosage: 250 MG, 1X/DAY
     Route: 048
  7. CO PERINEVA [Concomitant]
     Dosage: 1.5 MG/4 MG, 1X IN THE MORNING
  8. VENTOLIN [Concomitant]
     Active Substance: ALBUTEROL SULFATE
     Dosage: UNK UNK, AS NEEDED
  9. XALKORI [Suspect]
     Active Substance: CRIZOTINIB
     Indication: ADENOCARCINOMA
     Dosage: 250 MG, 2X/DAY
     Route: 048
     Dates: start: 20161115, end: 20161220
  10. ROSUVASTATIN. [Concomitant]
     Active Substance: ROSUVASTATIN
     Dosage: 5 MG, IN THE EVENING

REACTIONS (5)
  - Hypoxia [Fatal]
  - Generalised oedema [Unknown]
  - Respiratory failure [Fatal]
  - Circulatory collapse [Fatal]
  - Blood sodium increased [Fatal]

NARRATIVE: CASE EVENT DATE: 20161231
